FAERS Safety Report 7712221-0 (Version None)
Quarter: 2011Q3

REPORT INFORMATION
  Report Type: 
  Country: None (occurrence: None)
  Receive Date: 20110826
  Receipt Date: 20110819
  Transmission Date: 20111222
  Serious: Yes (Other)
  Sender: FDA-Public Use
  Company Number: US-AMGEN-USASP2011042347

PATIENT
  Age: 65 Year
  Sex: Female

DRUGS (19)
  1. VITAMIN D [Concomitant]
     Dosage: UNK
  2. URSO FORTE [Concomitant]
     Dosage: 1 MG, UNK
  3. NORVASC [Concomitant]
     Dosage: 1 MG, UNK
  4. COMPAZINE [Concomitant]
     Dosage: UNK
  5. NITROSTAT [Concomitant]
     Dosage: UNK
  6. SYNTHROID [Concomitant]
     Dosage: 1 A?G, UNK
  7. MIRAPEX [Concomitant]
     Dosage: UNK
  8. ATARAX [Concomitant]
     Dosage: 3 MG, UNK
  9. COLACE [Concomitant]
     Dosage: UNK
  10. BACLOFEN [Concomitant]
     Dosage: 4 MG, UNK
  11. IMDUR [Concomitant]
     Dosage: 1 MG, UNK
  12. B12                                /00056201/ [Concomitant]
     Dosage: 1 A?G, UNK
  13. CRANBERRY                          /01512301/ [Concomitant]
     Dosage: UNK
  14. NEXIUM [Concomitant]
     Dosage: 2 MG, UNK
  15. ASPIRIN [Concomitant]
     Dosage: 1 MG, UNK
  16. FISH OIL [Concomitant]
     Dosage: 3 MG, UNK
  17. PROLIA [Suspect]
     Indication: OSTEOPOROSIS POSTMENOPAUSAL
     Dosage: 60 MG, Q6MO
     Dates: start: 20110616
  18. CLONAZEPAM [Concomitant]
     Dosage: 2 MG, UNK
  19. CALCIUM CITRATE [Concomitant]
     Dosage: 2 MG, UNK

REACTIONS (2)
  - URINARY TRACT INFECTION [None]
  - CYSTITIS INTERSTITIAL [None]
